FAERS Safety Report 5196967-7 (Version None)
Quarter: 2006Q4

REPORT INFORMATION
  Report Type: 
  Country: None (occurrence: None)
  Receive Date: 20061227
  Receipt Date: 20061214
  Transmission Date: 20070319
  Serious: Yes (Other)
  Sender: FDA-Public Use
  Company Number: 2006154793

PATIENT
  Age: 66 Year
  Sex: Female

DRUGS (4)
  1. EPANUTIN (PHENYTOIN SODIUM) [Suspect]
     Indication: EPILEPSY
     Dosage: ORAL
     Route: 048
  2. PHENOBARBITONE (PHENOBARBITOL) [Concomitant]
  3. EPILIM (VALPROATE SODIUM) [Concomitant]
  4. ANTIDEPRESSANTS (ANTIDEPRESSANTS) [Concomitant]

REACTIONS (12)
  - ANTICONVULSANT DRUG LEVEL INCREASED [None]
  - BALANCE DISORDER [None]
  - CONDITION AGGRAVATED [None]
  - DISORIENTATION [None]
  - EPILEPSY [None]
  - FALL [None]
  - HODGKIN'S DISEASE [None]
  - LYMPHADENOPATHY [None]
  - MASS [None]
  - MYOCARDIAL INFARCTION [None]
  - NERVOUS SYSTEM DISORDER [None]
  - THINKING ABNORMAL [None]
